FAERS Safety Report 25582618 (Version 1)
Quarter: 2025Q3

REPORT INFORMATION
  Report Type: Report from Study
  Country: CA (occurrence: CA)
  Receive Date: 20250720
  Receipt Date: 20250720
  Transmission Date: 20251020
  Serious: Yes (Hospitalization)
  Sender: IPSEN BIOPHARMACEUTICALS, INC.
  Company Number: CA-IPSEN Group, Research and Development-2025-17562

PATIENT
  Age: 80 Year
  Sex: Female

DRUGS (17)
  1. LANREOTIDE ACETATE [Suspect]
     Active Substance: LANREOTIDE ACETATE
     Indication: Gastroenteropancreatic neuroendocrine tumour disease
     Dosage: DEEP SC
     Dates: start: 20250521
  2. CITALOPRAM [Concomitant]
     Active Substance: CITALOPRAM
     Dosage: CITALOPRAM 10 MG 1 CO DIE
  3. METFORMIN [Concomitant]
     Active Substance: METFORMIN HYDROCHLORIDE
     Dosage: METFORMIN 850 MG 1 CO BID
  4. INVOKANA [Concomitant]
     Active Substance: CANAGLIFLOZIN
  5. SYNTHROID [Concomitant]
     Active Substance: LEVOTHYROXINE SODIUM
  6. TRICHLORMETHIAZIDE [Concomitant]
     Active Substance: TRICHLORMETHIAZIDE
  7. SAXAGLIPTIN [Concomitant]
     Active Substance: SAXAGLIPTIN
  8. CANDESARTAN [Concomitant]
     Active Substance: CANDESARTAN
  9. MONTELUKAST [Concomitant]
     Active Substance: MONTELUKAST
  10. Giclazide [Concomitant]
  11. AMLODIPINE [Concomitant]
     Active Substance: AMLODIPINE BESYLATE
  12. MCAL D [Concomitant]
  13. Prochlorazine [Concomitant]
  14. LOPERAMIDE [Concomitant]
     Active Substance: LOPERAMIDE
  15. BETADERM [Concomitant]
     Active Substance: BETAMETHASONE VALERATE
  16. ACETAMINOPHEN [Concomitant]
     Active Substance: ACETAMINOPHEN
  17. ALBUTEROL [Concomitant]
     Active Substance: ALBUTEROL

REACTIONS (7)
  - Malaise [Recovered/Resolved]
  - Dyspnoea [Recovered/Resolved]
  - Fatigue [Recovered/Resolved]
  - Asthenia [Recovered/Resolved]
  - Productive cough [Recovered/Resolved]
  - Pyrexia [Recovered/Resolved]
  - Pneumonia [Recovered/Resolved]

NARRATIVE: CASE EVENT DATE: 20250601
